FAERS Safety Report 5066838-5 (Version None)
Quarter: 2006Q3

REPORT INFORMATION
  Report Type: 
  Country: None (occurrence: None)
  Receive Date: 20060726
  Receipt Date: 20060719
  Transmission Date: 20061208
  Serious: Yes (Hospitalization)
  Sender: FDA-Public Use
  Company Number: E2090-00049-SPO-JP

PATIENT
  Age: 70 Year
  Sex: Male

DRUGS (12)
  1. ZONISAMIDE [Suspect]
     Dosage: 200 MG, 1 IN 1 D, ORAL
     Route: 048
     Dates: start: 20060221, end: 20060701
  2. MADOPAR (MADOPAR) [Suspect]
     Dosage: ORAL
     Route: 048
     Dates: end: 20060701
  3. PIPERACILLIN SODIUM [Suspect]
     Dates: end: 20060701
  4. CEFPIRAMIDE SODIUM [Suspect]
     Dosage: INTRAVENOUS
     Route: 042
     Dates: end: 20060701
  5. SELBEX (TEPRENONE) [Concomitant]
  6. DIGOXIN [Concomitant]
  7. ALDACTONE [Concomitant]
  8. LASIX [Concomitant]
  9. BISOLVON (BROMHEXINE HYDROCHLORIDE) [Concomitant]
  10. LANSOPRAZOLE [Concomitant]
  11. GLUCONSAN K (POTASSIUM GLUCONATE) [Concomitant]
  12. ROMIKACIN (AMIKACIN SULFATE) [Concomitant]

REACTIONS (2)
  - DRY SKIN [None]
  - TOXIC EPIDERMAL NECROLYSIS [None]
